FAERS Safety Report 9247946 (Version 1)
Quarter: 2013Q1

REPORT INFORMATION
  Report Type: Spontaneous
  Country: US (occurrence: None)
  Receive Date: 20121130
  Receipt Date: 20121130
  Transmission Date: 20140127
  Serious: Yes (Hospitalization)
  Sender: FDA-Public Use
  Company Number: 341108

PATIENT
  Age: 41 Year
  Sex: Female
  Weight: 72.58 kg

DRUGS (13)
  1. NOVOLOG [Suspect]
     Indication: TYPE 1 DIABETES MELLITUS
     Dosage: SUCUTAN.-PUMP
  2. TIROSINT [Concomitant]
  3. FLUCONAZOLE (FLUCONAZOLE) [Concomitant]
  4. LASIX (FUROSEMIDE) [Concomitant]
  5. TEKTURNA HCT [Concomitant]
  6. MOTRIN [Concomitant]
  7. BENADRYL [Concomitant]
  8. ASPIRIN [Concomitant]
  9. CALCIUM + VIT D [Concomitant]
  10. VITAMIN C [Concomitant]
  11. ZINC [Concomitant]
  12. D3 [Concomitant]
  13. FLAXSEED OIL [Concomitant]

REACTIONS (2)
  - Diabetic ketoacidosis [None]
  - Liquid product physical issue [None]
